FAERS Safety Report 22339646 (Version 1)
Quarter: 2023Q2

REPORT INFORMATION
  Report Type: Spontaneous
  Country: IE (occurrence: None)
  Receive Date: 20230518
  Receipt Date: 20230518
  Transmission Date: 20230722
  Serious: Yes (Other)
  Sender: FDA-Public Use
  Company Number: 2023A110156

PATIENT
  Age: 5 Month
  Sex: Male

DRUGS (4)
  1. OMEPRAZOLE [Suspect]
     Active Substance: OMEPRAZOLE
     Indication: Gastrooesophageal reflux in neonate
     Route: 064
  2. AMOXICILLIN [Concomitant]
     Active Substance: AMOXICILLIN
     Indication: Impetigo
  3. FLUCLOXACILLIN [Concomitant]
     Active Substance: FLUCLOXACILLIN
     Indication: Impetigo
  4. COTRIMOXAZOLE [Concomitant]
     Active Substance: SULFAMETHOXAZOLE\TRIMETHOPRIM
     Indication: Impetigo

REACTIONS (2)
  - Exposure during pregnancy [Unknown]
  - Zinc deficiency [Unknown]
